FAERS Safety Report 21754554 (Version 1)
Quarter: 2022Q4

REPORT INFORMATION
  Report Type: Spontaneous
  Country: US (occurrence: None)
  Receive Date: 20221219
  Receipt Date: 20221219
  Transmission Date: 20230113
  Serious: No
  Sender: FDA-Public Use
  Company Number: None

PATIENT
  Age: 84 Year
  Sex: Male
  Weight: 86.64 kg

DRUGS (34)
  1. LEUKERAN [Suspect]
     Active Substance: CHLORAMBUCIL
     Indication: Chronic lymphocytic leukaemia
     Dosage: FREQUENCY : DAILY;?
     Route: 048
  2. ACETAMINOPHEN [Concomitant]
  3. ACETAMINOPHEN-CODEINE#3 [Concomitant]
  4. ALBUTEROL [Concomitant]
     Active Substance: ALBUTEROL
  5. ALLEGRA ALLERGY [Concomitant]
  6. ASPIRIN LOW [Concomitant]
  7. ATORVASTATIN [Concomitant]
  8. AZELASTINE [Concomitant]
  9. BREZTRI [Concomitant]
  10. CARVEDILOL [Concomitant]
     Active Substance: CARVEDILOL
  11. CEFDINIR [Concomitant]
  12. CEPHALEXIN [Concomitant]
  13. CETIRIZINE [Concomitant]
  14. DOCUSATE SODIU [Concomitant]
  15. ELIQUIS [Concomitant]
     Active Substance: APIXABAN
  16. FLUTICASONE [Concomitant]
  17. FUROSEMIDE [Concomitant]
  18. GUAIFENESIN [Concomitant]
  19. HYDROXYZINE [Concomitant]
  20. IPRATROPIUM-ALBUTEROL [Concomitant]
  21. IRON [Concomitant]
  22. LIDODERM [Concomitant]
  23. LOSARTAN [Concomitant]
  24. MELATONIN [Concomitant]
     Active Substance: MELATONIN
  25. METAMUCIL [Concomitant]
  26. NORCO [Concomitant]
  27. OMEPRAZOLE [Concomitant]
  28. PLAVIX [Concomitant]
  29. POTASSIUM CHLORIDE [Concomitant]
  30. PRAMIPEXOLE [Concomitant]
  31. PREDNISONE [Concomitant]
  32. PROBIOTIC [Concomitant]
  33. TAMSULOSIN [Concomitant]
  34. VITAMIN D3 [Concomitant]

REACTIONS (1)
  - COVID-19 [None]
